FAERS Safety Report 7559275-2 (Version None)
Quarter: 2011Q2

REPORT INFORMATION
  Report Type: 
  Country: None (occurrence: None)
  Receive Date: 20110617
  Receipt Date: 20110617
  Transmission Date: 20111010
  Serious: No
  Sender: FDA-Public Use
  Company Number: None

PATIENT
  Age: 45 Year
  Sex: Male

DRUGS (2)
  1. PIPERACILLIN AND TAZOBACTAM [Suspect]
     Dates: start: 20091124, end: 20091125
  2. AMPICILLIN AND SULBACTAM [Suspect]
     Dates: start: 20091124, end: 20091124

REACTIONS (9)
  - RASH MACULO-PAPULAR [None]
  - ALANINE AMINOTRANSFERASE INCREASED [None]
  - BLOOD BILIRUBIN INCREASED [None]
  - LIVER INJURY [None]
  - PRURITUS [None]
  - ASPARTATE AMINOTRANSFERASE INCREASED [None]
  - EOSINOPHILIA [None]
  - BLOOD ALKALINE PHOSPHATASE INCREASED [None]
  - JAUNDICE [None]
